FAERS Safety Report 14819609 (Version 2)
Quarter: 2019Q3

REPORT INFORMATION
  Report Type: Report from Study
  Country: US (occurrence: US)
  Receive Date: 20180427
  Receipt Date: 20190719
  Transmission Date: 20191004
  Serious: No
  Sender: FDA-Public Use
  Company Number: PHEH2018US016385

PATIENT
  Age: 53 Year
  Sex: Female

DRUGS (1)
  1. COSENTYX [Suspect]
     Active Substance: SECUKINUMAB
     Indication: PSORIASIS
     Dosage: 300 MG, QMO
     Route: 058
     Dates: start: 20171201

REACTIONS (5)
  - Skin fissures [Unknown]
  - Gait disturbance [Unknown]
  - Lymphadenopathy [Unknown]
  - Malaise [Unknown]
  - Dry skin [Unknown]

NARRATIVE: CASE EVENT DATE: 20180125
